FAERS Safety Report 9833340 (Version 1)
Quarter: 2014Q1

REPORT INFORMATION
  Report Type: Spontaneous
  Country: US (occurrence: US)
  Receive Date: 20140121
  Receipt Date: 20140121
  Transmission Date: 20141002
  Serious: Yes (Death)
  Sender: FDA-Public Use
  Company Number: US-ALLERGAN-1400816US

PATIENT
  Age: 73 Year
  Sex: Male
  Weight: 107.94 kg

DRUGS (30)
  1. BOTOX [Suspect]
     Indication: HEMIPLEGIA
     Dosage: 30 UNITS, SINGLE
     Route: 030
     Dates: start: 20091118, end: 20091118
  2. BOTOX [Suspect]
     Dosage: 30 UNITS, SINGLE
     Route: 030
     Dates: start: 20091118, end: 20091118
  3. BOTOX [Suspect]
     Dosage: 50 UNITS, SINGLE
     Route: 030
     Dates: start: 20091118, end: 20091118
  4. BOTOX [Suspect]
     Dosage: 50 UNITS, SINGLE
     Route: 030
     Dates: start: 20091118, end: 20091118
  5. BOTOX [Suspect]
     Dosage: 50 UNITS, SINGLE
     Route: 030
     Dates: start: 20091118, end: 20091118
  6. BOTOX [Suspect]
     Dosage: 50 UNITS, SINGLE
     Route: 030
     Dates: start: 20091118, end: 20091118
  7. BOTOX [Suspect]
     Dosage: 40 UNITS, SINGLE
     Route: 030
     Dates: start: 20091118, end: 20091118
  8. BOTOX [Suspect]
     Dosage: 30 UNITS, SINGLE
     Route: 030
     Dates: start: 20090831, end: 20090831
  9. BOTOX [Suspect]
     Dosage: 30 UNITS, SINGLE
     Route: 030
     Dates: start: 20090831, end: 20090831
  10. BOTOX [Suspect]
     Dosage: 50 UNITS, SINGLE
     Route: 030
     Dates: start: 20090831, end: 20090831
  11. BOTOX [Suspect]
     Dosage: 50 UNITS, SINGLE
     Route: 030
     Dates: start: 20090831, end: 20090831
  12. BOTOX [Suspect]
     Dosage: 50 UNITS, SINGLE
     Route: 030
     Dates: start: 20090831, end: 20090831
  13. BOTOX [Suspect]
     Dosage: 50 UNITS, SINGLE
     Route: 030
     Dates: start: 20090831, end: 20090831
  14. BOTOX [Suspect]
     Dosage: 40 UNITS, SINGLE
     Route: 030
     Dates: start: 20090831, end: 20090831
  15. BOTOX [Suspect]
     Dosage: 30 UNITS, SINGLE
     Route: 030
     Dates: start: 20090529, end: 20090529
  16. BOTOX [Suspect]
     Dosage: 30 UNITS, SINGLE
     Route: 030
     Dates: start: 20090529, end: 20090529
  17. BOTOX [Suspect]
     Dosage: 50 UNITS, SINGLE
     Route: 030
     Dates: start: 20090529, end: 20090529
  18. BOTOX [Suspect]
     Dosage: 50 UNITS, SINGLE
     Route: 030
     Dates: start: 20090529, end: 20090529
  19. BOTOX [Suspect]
     Dosage: 50 UNITS, SINGLE
     Route: 030
     Dates: start: 20090529, end: 20090529
  20. BOTOX [Suspect]
     Dosage: 50 UNITS, SINGLE
     Route: 030
     Dates: start: 20090529, end: 20090529
  21. BOTOX [Suspect]
     Dosage: 40 UNITS, SINGLE
     Route: 030
     Dates: start: 20090529, end: 20090529
  22. BOTOX [Suspect]
     Dosage: 30 UNITS, SINGLE
     Route: 030
     Dates: start: 20090424, end: 20090424
  23. BOTOX [Suspect]
     Dosage: 30 UNITS, SINGLE
     Route: 030
     Dates: start: 20090424, end: 20090424
  24. BOTOX [Suspect]
     Dosage: 50 UNITS, SINGLE
     Route: 030
     Dates: start: 20090424, end: 20090424
  25. BOTOX [Suspect]
     Dosage: 50 UNITS, SINGLE
     Route: 030
     Dates: start: 20090424, end: 20090424
  26. BOTOX [Suspect]
     Dosage: 50 UNITS, SINGLE
     Route: 030
     Dates: start: 20090424, end: 20090424
  27. BOTOX [Suspect]
     Dosage: 50 UNITS, SINGLE
     Route: 030
     Dates: start: 20090424, end: 20090424
  28. BOTOX [Suspect]
     Dosage: 40 UNITS, SINGLE
     Route: 030
     Dates: start: 20090424, end: 20090424
  29. LIPITOR [Concomitant]
     Indication: HYPERCHOLESTEROLAEMIA
  30. LISINOPRIL [Concomitant]
     Indication: HYPERTENSION

REACTIONS (1)
  - Death [Fatal]
